FAERS Safety Report 5159941-2 (Version None)
Quarter: 2006Q4

REPORT INFORMATION
  Report Type: 
  Country: None (occurrence: None)
  Receive Date: 20061129
  Receipt Date: 20060801
  Transmission Date: 20070319
  Serious: Yes (Death, Life-Threatening, Hospitalization)
  Sender: FDA-Public Use
  Company Number: JP-AVENTIS-200612422JP

PATIENT
  Age: 61 Year
  Sex: Male

DRUGS (6)
  1. RILUTEK [Suspect]
     Indication: AMYOTROPHIC LATERAL SCLEROSIS
     Route: 048
     Dates: start: 20031101, end: 20050811
  2. RILUTEK [Suspect]
     Dosage: ROUTE: GASTROSTOMY TUBE
     Route: 050
     Dates: start: 20050812, end: 20051114
  3. RILUTEK [Suspect]
     Dosage: ROUTE: GASTROSTOMY TUBE
     Route: 050
     Dates: start: 20051128, end: 20060505
  4. FAMOTIDINE [Concomitant]
     Indication: GASTRITIS
     Dosage: ROUTE: GASTROSTOMY TUBE
     Route: 050
     Dates: start: 20051128, end: 20060505
  5. MARZULENE S [Concomitant]
     Indication: GASTRITIS
     Dosage: ROUTE: GASTROSTOMY TUBE
     Route: 050
     Dates: start: 20051128, end: 20060505
  6. AMINO ACIDS/CARBOHYDRATES/MINERALS/VITAMINS, [Concomitant]
     Indication: BULBAR PALSY
     Dosage: ROUTE: GASTROSTOMY TUBE
     Route: 050
     Dates: start: 20051122, end: 20060505

REACTIONS (4)
  - CONDITION AGGRAVATED [None]
  - DISEASE PROGRESSION [None]
  - PNEUMONIA [None]
  - PYREXIA [None]
